FAERS Safety Report 9808074 (Version 1)
Quarter: 2014Q1

REPORT INFORMATION
  Report Type: Spontaneous
  Country: GB (occurrence: GB)
  Receive Date: 20140110
  Receipt Date: 20140110
  Transmission Date: 20141002
  Serious: Yes (Other)
  Sender: FDA-Public Use
  Company Number: GB-GLAXOSMITHKLINE-B0958138A

PATIENT
  Age: 5 Year
  Sex: Female
  Weight: 21 kg

DRUGS (5)
  1. ACICLOVIR [Suspect]
     Indication: ENCEPHALITIS VIRAL
     Dosage: 1200MG PER DAY
     Route: 042
     Dates: start: 20130804
  2. CEFTRIAXONE [Concomitant]
     Route: 042
     Dates: start: 20130804
  3. RANITIDINE [Concomitant]
     Route: 042
     Dates: start: 20130804
  4. MIDAZOLAM [Concomitant]
     Dates: start: 20130804
  5. MORPHINE [Concomitant]
     Dates: start: 20130804

REACTIONS (2)
  - Blister [Not Recovered/Not Resolved]
  - Lip swelling [Not Recovered/Not Resolved]
